FAERS Safety Report 19928047 (Version 2)
Quarter: 2021Q4

REPORT INFORMATION
  Report Type: Spontaneous
  Country: CA (occurrence: None)
  Receive Date: 20211007
  Receipt Date: 20211221
  Transmission Date: 20220303
  Serious: Yes (Other)
  Sender: FDA-Public Use
  Company Number: CA-PFIZER INC-2020476914

PATIENT
  Age: 47 Year
  Sex: Male
  Weight: 93 kg

DRUGS (1)
  1. METHOTREXATE [Suspect]
     Active Substance: METHOTREXATE
     Indication: Rheumatoid arthritis
     Route: 048
     Dates: end: 2010

REACTIONS (8)
  - Therapeutic response decreased [Unknown]
  - Liver function test increased [Unknown]
  - Drug intolerance [Unknown]
  - Injury [Unknown]
  - Physical disability [Unknown]
  - Swelling [Unknown]
  - Abdominal discomfort [Unknown]
  - Nausea [Unknown]
